FAERS Safety Report 21392000 (Version 2)
Quarter: 2022Q4

REPORT INFORMATION
  Report Type: Spontaneous
  Country: JP (occurrence: JP)
  Receive Date: 20220929
  Receipt Date: 20221021
  Transmission Date: 20230113
  Serious: Yes (Life-Threatening, Hospitalization)
  Sender: FDA-Public Use
  Company Number: JP-Merck Healthcare KGaA-9353079

PATIENT
  Sex: Male

DRUGS (1)
  1. ERBITUX [Suspect]
     Active Substance: CETUXIMAB
     Indication: Oropharyngeal cancer
     Dosage: UNK, UNKNOWN
     Route: 041

REACTIONS (3)
  - Ventricular tachycardia [Recovered/Resolved]
  - Cardio-respiratory arrest [Recovered/Resolved]
  - Hypomagnesaemia [Unknown]

NARRATIVE: CASE EVENT DATE: 20220201
